FAERS Safety Report 6951417-2 (Version None)
Quarter: 2010Q3

REPORT INFORMATION
  Report Type: 
  Country: None (occurrence: None)
  Receive Date: 20100828
  Receipt Date: 20100325
  Transmission Date: 20110219
  Serious: No
  Sender: FDA-Public Use
  Company Number: US-ABBOTT-10P-163-0634690-00

PATIENT
  Sex: Male
  Weight: 85.352 kg

DRUGS (11)
  1. NIASPAN [Suspect]
     Indication: DIABETES MELLITUS
     Route: 048
     Dates: start: 20100323
  2. DIOVAN [Concomitant]
     Indication: PRODUCT USED FOR UNKNOWN INDICATION
  3. PRAVASTATIN [Concomitant]
     Indication: PRODUCT USED FOR UNKNOWN INDICATION
  4. COREG [Concomitant]
     Indication: PRODUCT USED FOR UNKNOWN INDICATION
  5. METFORMIN [Concomitant]
     Indication: PRODUCT USED FOR UNKNOWN INDICATION
  6. PAROXITENE [Concomitant]
     Indication: PRODUCT USED FOR UNKNOWN INDICATION
  7. PRANDIN [Concomitant]
     Indication: PRODUCT USED FOR UNKNOWN INDICATION
  8. CLONOPIN [Concomitant]
     Indication: PRODUCT USED FOR UNKNOWN INDICATION
  9. METHIMAZOLA [Concomitant]
     Indication: PRODUCT USED FOR UNKNOWN INDICATION
  10. PEPCID [Concomitant]
     Indication: PRODUCT USED FOR UNKNOWN INDICATION
  11. ASPIRIN [Concomitant]
     Indication: PRODUCT USED FOR UNKNOWN INDICATION

REACTIONS (1)
  - FEELING HOT [None]
